FAERS Safety Report 13065512 (Version 2)
Quarter: 2018Q2

REPORT INFORMATION
  Report Type: Spontaneous
  Country: FR (occurrence: FR)
  Receive Date: 20161227
  Receipt Date: 20180626
  Transmission Date: 20180711
  Serious: Yes (Life-Threatening)
  Sender: FDA-Public Use
  Company Number: FR-PFIZER INC-2016593139

PATIENT
  Age: 47 Year
  Sex: Female

DRUGS (4)
  1. SELINCRO [Suspect]
     Active Substance: NALMEFENE HYDROCHLORIDE DIHYDRATE
     Indication: ALCOHOLISM
     Dosage: 18 MG, DAILY
     Route: 048
     Dates: start: 20161118, end: 20161207
  2. EFFEXOR LP [Suspect]
     Active Substance: VENLAFAXINE HYDROCHLORIDE
     Indication: AFFECTIVE DISORDER
     Dosage: 112.5 MG, DAILY
     Route: 048
     Dates: start: 20161028, end: 20161207
  3. XANAX [Suspect]
     Active Substance: ALPRAZOLAM
     Indication: ANXIETY
     Dosage: 0.5 TABLET IN THE MORNING AND AT NOON, 1 TABLET IN THE EVENING
     Dates: end: 20161207
  4. XEROQUEL LP [Suspect]
     Active Substance: QUETIAPINE FUMARATE
     Indication: AFFECTIVE DISORDER
     Dosage: 50 MG, 1X/DAY
     Route: 048
     Dates: start: 20161118, end: 20161207

REACTIONS (1)
  - Thrombotic thrombocytopenic purpura [Recovering/Resolving]

NARRATIVE: CASE EVENT DATE: 20161207
